FAERS Safety Report 8128022-8 (Version None)
Quarter: 2012Q1

REPORT INFORMATION
  Report Type: 
  Country: None (occurrence: None)
  Receive Date: 20120210
  Receipt Date: 20120202
  Transmission Date: 20120608
  Serious: Yes (Other)
  Sender: FDA-Public Use
  Company Number: US-JNJFOC-20120202877

PATIENT
  Sex: Female
  Weight: 74.84 kg

DRUGS (5)
  1. BENADRYL [Suspect]
     Indication: SLEEP DISORDER THERAPY
     Dosage: INITIATED ON AN UNSPECIFIED DATE 2 TO 3 YEARS AGO
     Route: 065
  2. AMBIEN [Suspect]
     Indication: SLEEP DISORDER THERAPY
     Dosage: INITIATED ON AN UNSPECIFIED DATE 2 TO 3 YEARS AGO
     Route: 065
  3. VERSED [Suspect]
     Indication: SLEEP DISORDER THERAPY
     Dosage: INITIATED ON AN UNSPECIFIED DATE 2 TO 3 YEARS AGO
     Route: 065
  4. BENADRYL [Suspect]
     Route: 065
  5. LUNESTA [Suspect]
     Indication: SLEEP DISORDER THERAPY
     Dosage: INITIATED ON AN UNSPECIFIED DATE 2 TO 3 YEARS AGO
     Route: 065

REACTIONS (6)
  - HYPERVIGILANCE [None]
  - MANIA [None]
  - LOGORRHOEA [None]
  - OFF LABEL USE [None]
  - GALLBLADDER OPERATION [None]
  - DRUG INEFFECTIVE [None]
